FAERS Safety Report 4739870-6 (Version None)
Quarter: 2005Q3

REPORT INFORMATION
  Report Type: 
  Country: None (occurrence: None)
  Receive Date: 20050729
  Receipt Date: 20050318
  Transmission Date: 20060218
  Serious: Yes (Other)
  Sender: FDA-Public Use
  Company Number: 2005S1001388

PATIENT
  Age: 71 Year
  Sex: Female

DRUGS (9)
  1. APOMORPHINE HYDROCHLORIDE (APOMORPHINE HYDROCHLORIDE) [Suspect]
     Indication: PARKINSON'S DISEASE
     Dosage: 1 MG/HR;SC ; 5 MG/HR;SC
  2. LEVODOPA/BENSERAZIDE HYDROCHLORIDE [Concomitant]
  3. . [Concomitant]
  4. QUETIAPINE FUMARATE [Concomitant]
  5. FOLIC ACID [Concomitant]
  6. LANSOPRAZOLE [Concomitant]
  7. ASPIRIN [Concomitant]
  8. CARBIDOPA AND LEVODOPA [Concomitant]
  9. SENNA [Concomitant]

REACTIONS (2)
  - MEDICATION ERROR [None]
  - SOMNOLENCE [None]
